FAERS Safety Report 13911005 (Version 2)
Quarter: 2017Q3

REPORT INFORMATION
  Report Type: Report from Study
  Country: CA (occurrence: CA)
  Receive Date: 20170828
  Receipt Date: 20170926
  Transmission Date: 20171127
  Serious: Yes (Other)
  Sender: FDA-Public Use
  Company Number: CA-REGENERON PHARMACEUTICALS, INC.-2017-20851

PATIENT

DRUGS (5)
  1. EYLEA [Suspect]
     Active Substance: AFLIBERCEPT
     Dosage: UNK (OD)
     Dates: start: 20170327, end: 20170327
  2. EYLEA [Suspect]
     Active Substance: AFLIBERCEPT
     Dosage: UNK (OD)
     Dates: start: 20170601, end: 20170601
  3. EYLEA [Suspect]
     Active Substance: AFLIBERCEPT
     Dosage: UNK (OD)
     Dates: start: 20170424, end: 20170424
  4. EYLEA [Suspect]
     Active Substance: AFLIBERCEPT
     Indication: DIABETIC RETINAL OEDEMA
     Dosage: UNK (OD)
     Dates: start: 20170112, end: 20170112
  5. EYLEA [Suspect]
     Active Substance: AFLIBERCEPT
     Dosage: UNK (OD)
     Dates: start: 20170221, end: 20170221

REACTIONS (2)
  - Eye laser surgery [Recovered/Resolved]
  - Eye laser surgery [Recovered/Resolved]

NARRATIVE: CASE EVENT DATE: 20170615
